FAERS Safety Report 4746344-5 (Version None)
Quarter: 2005Q3

REPORT INFORMATION
  Report Type: 
  Country: None (occurrence: None)
  Receive Date: 20050815
  Receipt Date: 20050803
  Transmission Date: 20060218
  Serious: Yes (Life-Threatening, Hospitalization)
  Sender: FDA-Public Use
  Company Number: 2005084843

PATIENT
  Age: 40 Year
  Sex: Male
  Weight: 103 kg

DRUGS (3)
  1. ZELDOX (CAPSULES) (ZIPRASIDONE) [Suspect]
     Indication: SCHIZOPHRENIA, PARANOID TYPE
     Dosage: 120 MG, ORAL
     Route: 048
     Dates: start: 20050428, end: 20050523
  2. ZYPREXA [Concomitant]
  3. METOPROLOL SUCCINATE [Concomitant]

REACTIONS (2)
  - NEUROLEPTIC MALIGNANT SYNDROME [None]
  - RHABDOMYOLYSIS [None]
